FAERS Safety Report 12881394 (Version 1)
Quarter: 2016Q4

REPORT INFORMATION
  Report Type: Spontaneous
  Country: HU (occurrence: HU)
  Receive Date: 20161025
  Receipt Date: 20161025
  Transmission Date: 20170207
  Serious: Yes (Other)
  Sender: FDA-Public Use
  Company Number: HU-BAYER-2016-201612

PATIENT
  Sex: Female

DRUGS (4)
  1. STIVARGA [Suspect]
     Active Substance: REGORAFENIB
     Indication: COLORECTAL CANCER METASTATIC
     Dosage: 40 MG, QID
     Route: 048
     Dates: start: 20151208, end: 20151220
  2. STIVARGA [Suspect]
     Active Substance: REGORAFENIB
     Indication: COLORECTAL CANCER METASTATIC
     Dosage: 40 MG, TID
     Dates: end: 20160319
  3. STIVARGA [Suspect]
     Active Substance: REGORAFENIB
     Indication: COLORECTAL CANCER METASTATIC
     Dosage: 40 MG, TID
     Route: 048
     Dates: start: 20160712, end: 20160902
  4. STIVARGA [Suspect]
     Active Substance: REGORAFENIB
     Indication: COLORECTAL CANCER METASTATIC
     Dosage: 40 MG, TID
     Dates: start: 201512

REACTIONS (9)
  - Erythema [Recovered/Resolved]
  - Blood lactate dehydrogenase increased [Recovered/Resolved]
  - Palmoplantar keratoderma [None]
  - Thrombocytopenia [Recovered/Resolved]
  - Metastases to liver [None]
  - Pain in extremity [None]
  - Burning sensation [Recovered/Resolved]
  - Rash erythematous [Recovered/Resolved]
  - Mesenteric neoplasm [None]

NARRATIVE: CASE EVENT DATE: 20151220
